FAERS Safety Report 8268750 (Version 4)
Quarter: 2012Q4

REPORT INFORMATION
  Report Type: 
  Country: US (occurrence: US)
  Receive Date: 20111130
  Receipt Date: 20121119
  Transmission Date: 20130627
  Serious: Yes (Other)
  Sender: FDA-Public Use
  Company Number: US-ELI_LILLY_AND_COMPANY-US201111008063

PATIENT
  Sex: Female

DRUGS (4)
  1. FORTEO [Suspect]
     Indication: OSTEOPOROSIS
     Dosage: 20 ug, qd
     Route: 058
     Dates: start: 200911
  2. FORTEO [Suspect]
     Dosage: 20 ug, qd
     Route: 058
  3. FORTEO [Suspect]
     Dosage: 20 ug, qd
     Route: 058
     Dates: end: 201011
  4. FORTEO [Suspect]
     Dosage: 20 ug, qd
     Route: 058
     Dates: start: 201201, end: 201203

REACTIONS (7)
  - Oesophageal haemorrhage [Unknown]
  - Hepatic artery occlusion [Unknown]
  - Bone disorder [Unknown]
  - Adverse event [Unknown]
  - Muscular weakness [Unknown]
  - Muscle spasms [Unknown]
  - Muscle spasms [Unknown]
